FAERS Safety Report 14530870 (Version 1)
Quarter: 2018Q1

REPORT INFORMATION
  Report Type: Spontaneous
  Country: US (occurrence: US)
  Receive Date: 20180214
  Receipt Date: 20180214
  Transmission Date: 20180509
  Serious: Yes (Hospitalization, Other)
  Sender: FDA-Public Use
  Company Number: US-ZYDUS-019006

PATIENT
  Age: 29 Year
  Sex: Male

DRUGS (12)
  1. MIRTAZAPINE. [Suspect]
     Active Substance: MIRTAZAPINE
     Indication: ANTIDEPRESSANT THERAPY
     Route: 065
  2. MORPHINE/MORPHINE HYDROCHLORIDE/MORPHINE SULFATE/MORPHINE TARTRATE [Suspect]
     Active Substance: MORPHINE\MORPHINE HYDROCHLORIDE\MORPHINE SULFATE\MORPHINE TARTRATE
     Indication: ANALGESIC THERAPY
     Route: 048
  3. MORPHINE/MORPHINE HYDROCHLORIDE/MORPHINE SULFATE/MORPHINE TARTRATE [Suspect]
     Active Substance: MORPHINE\MORPHINE HYDROCHLORIDE\MORPHINE SULFATE\MORPHINE TARTRATE
     Indication: ANALGESIC THERAPY
     Route: 065
  4. CITALOPRAM [Suspect]
     Active Substance: CITALOPRAM HYDROBROMIDE
     Indication: ANTIDEPRESSANT THERAPY
     Route: 065
  5. ONDANSETRON [Suspect]
     Active Substance: ONDANSETRON
     Indication: PRODUCT USED FOR UNKNOWN INDICATION
     Route: 042
  6. MORPHINE/MORPHINE HYDROCHLORIDE/MORPHINE SULFATE/MORPHINE TARTRATE [Suspect]
     Active Substance: MORPHINE\MORPHINE HYDROCHLORIDE\MORPHINE SULFATE\MORPHINE TARTRATE
     Indication: PRODUCT USED FOR UNKNOWN INDICATION
     Route: 042
  7. PRAZOSIN. [Concomitant]
     Active Substance: PRAZOSIN
     Indication: NIGHTMARE
     Route: 065
  8. FENTANYL. [Suspect]
     Active Substance: FENTANYL
     Indication: PRODUCT USED FOR UNKNOWN INDICATION
     Route: 042
  9. SEVOFLURANE. [Concomitant]
     Active Substance: SEVOFLURANE
     Indication: MAINTENANCE OF ANAESTHESIA
     Route: 065
  10. CYCLOBENZAPRINE. [Concomitant]
     Active Substance: CYCLOBENZAPRINE
     Indication: MYALGIA
     Route: 065
  11. MORPHINE/MORPHINE HYDROCHLORIDE/MORPHINE SULFATE/MORPHINE TARTRATE [Suspect]
     Active Substance: MORPHINE\MORPHINE HYDROCHLORIDE\MORPHINE SULFATE\MORPHINE TARTRATE
     Indication: ANALGESIC THERAPY
     Route: 065
  12. HYDROMORPHONE/HYDROMORPHONE HYDROCHLORIDE [Suspect]
     Active Substance: HYDROMORPHONE
     Indication: PRODUCT USED FOR UNKNOWN INDICATION
     Route: 042

REACTIONS (11)
  - Hyporesponsive to stimuli [Recovered/Resolved]
  - Hypertension [Recovered/Resolved]
  - Blood glucose increased [None]
  - Procedural pain [None]
  - Tachypnoea [Recovered/Resolved]
  - Muscle rigidity [Recovered/Resolved]
  - Serotonin syndrome [Recovered/Resolved]
  - Agitation [Recovered/Resolved]
  - Mental status changes [Recovered/Resolved]
  - Tachycardia [Recovered/Resolved]
  - Back pain [None]
